FAERS Safety Report 4979636-5 (Version None)
Quarter: 2006Q2

REPORT INFORMATION
  Report Type: 
  Country: None (occurrence: None)
  Receive Date: 20060421
  Receipt Date: 20060417
  Transmission Date: 20061013
  Serious: Yes (Life-Threatening)
  Sender: FDA-Public Use
  Company Number: BR-JNJFOC-20060404372

PATIENT
  Age: 1 Month
  Sex: Male
  Weight: 4.2 kg

DRUGS (4)
  1. DAKTARIN [Suspect]
     Route: 048
  2. REDOXON [Concomitant]
  3. RINOSORO [Concomitant]
  4. RINOSORO [Concomitant]

REACTIONS (2)
  - ASPHYXIA [None]
  - DRUG ADMINISTRATION ERROR [None]
